FAERS Safety Report 8997222 (Version 1)
Quarter: 2013Q1

REPORT INFORMATION
  Report Type: Spontaneous
  Country: IE (occurrence: IE)
  Receive Date: 20130104
  Receipt Date: 20130104
  Transmission Date: 20140127
  Serious: Yes (Other)
  Sender: FDA-Public Use
  Company Number: IE-AMGEN-IRLSP2013000113

PATIENT
  Age: 87 Year
  Sex: Female

DRUGS (4)
  1. PROLIA [Suspect]
     Indication: PRODUCT USED FOR UNKNOWN INDICATION
     Dosage: 60 MG, UNK
     Dates: start: 20121130
  2. ZOMEL                              /01159001/ [Concomitant]
     Dosage: 30 MG, UNK
  3. OLMESARTAN [Concomitant]
     Dosage: 20 MG, UNK
  4. CALCICHEW [Concomitant]
     Dosage: 500 MG, UNK

REACTIONS (1)
  - Peroneal nerve palsy [Not Recovered/Not Resolved]
